FAERS Safety Report 22165118 (Version 1)
Quarter: 2023Q2

REPORT INFORMATION
  Report Type: Report from Study
  Country: CA (occurrence: CA)
  Receive Date: 20230403
  Receipt Date: 20230403
  Transmission Date: 20230721
  Serious: Yes (Other)
  Sender: FDA-Public Use
  Company Number: CA-002147023-NVSC2023CA071660

PATIENT
  Age: 39 Year
  Sex: Female

DRUGS (1)
  1. KESIMPTA [Suspect]
     Active Substance: OFATUMUMAB
     Indication: Relapsing-remitting multiple sclerosis
     Dosage: UNK
     Route: 058
     Dates: start: 20230324

REACTIONS (8)
  - Fall [Unknown]
  - Balance disorder [Unknown]
  - Dysstasia [Unknown]
  - Limb discomfort [Unknown]
  - Muscular weakness [Unknown]
  - Chills [Unknown]
  - Headache [Unknown]
  - Asthenia [Recovered/Resolved]

NARRATIVE: CASE EVENT DATE: 20230324
